FAERS Safety Report 4332115-0 (Version None)
Quarter: 2004Q1

REPORT INFORMATION
  Report Type: 
  Country: None (occurrence: None)
  Receive Date: 20040329
  Receipt Date: 20040317
  Transmission Date: 20041129
  Serious: Yes (Other)
  Sender: FDA-Public Use
  Company Number: 163-20785-04030421

PATIENT
  Age: 61 Year
  Sex: Female

DRUGS (1)
  1. THALOMID [Suspect]
     Indication: OVARIAN CANCER
     Dosage: 100 MG, DAILY, ORAL
     Route: 048
     Dates: start: 20031212

REACTIONS (1)
  - HEPATIC FAILURE [None]
